FAERS Safety Report 7872769-5 (Version None)
Quarter: 2011Q4

REPORT INFORMATION
  Report Type: 
  Country: None (occurrence: None)
  Receive Date: 20111030
  Receipt Date: 20101217
  Transmission Date: 20120403
  Serious: Yes (Other)
  Sender: FDA-Public Use
  Company Number: PHHY2010ES92427

PATIENT
  Sex: Male

DRUGS (4)
  1. OLANZAPINE [Suspect]
     Indication: SCHIZOPHRENIA
     Dosage: 20 TO 30 MG /DAY
  2. CITALOPRAM HYDROBROMIDE [Suspect]
  3. MIRTAZAPINE [Suspect]
  4. CARBAMAZEPINE [Suspect]

REACTIONS (9)
  - XANTHOMA [None]
  - SKIN HYPERPIGMENTATION [None]
  - HYPERCHOLESTEROLAEMIA [None]
  - HYPERTRIGLYCERIDAEMIA [None]
  - HEPATOSPLENOMEGALY [None]
  - DYSLIPIDAEMIA [None]
  - PAPULE [None]
  - HYPERTROPHIC SCAR [None]
  - HEPATIC STEATOSIS [None]
